FAERS Safety Report 7627628 (Version 3)
Quarter: 2013Q4

REPORT INFORMATION
  Report Type: Spontaneous
  Country: US (occurrence: US)
  Receive Date: 20101013
  Receipt Date: 20131117
  Transmission Date: 20140711
  Serious: No
  Sender: FDA-Public Use
  Company Number: US-ASTRAZENECA-2010SE14826

PATIENT
  Age: 43 Year
  Sex: Female
  Weight: 46.7 kg

DRUGS (6)
  1. SYMBICORT PMDI [Suspect]
     Indication: CHRONIC OBSTRUCTIVE PULMONARY DISEASE
     Dosage: 160/4.5, 2PUFFS BID
     Route: 055
     Dates: start: 2005, end: 201310
  2. SYMBICORT PMDI [Suspect]
     Indication: RESPIRATORY THERAPY
     Dosage: 160/4.5, 2PUFFS BID
     Route: 055
     Dates: start: 2005, end: 201310
  3. PREDNISONE [Suspect]
     Route: 065
     Dates: start: 201308, end: 201308
  4. PREDNISONE [Suspect]
     Dosage: 1 DAY
     Route: 065
  5. COMBIVENT [Concomitant]
     Indication: CHRONIC OBSTRUCTIVE PULMONARY DISEASE
     Dosage: 2PUFFS BID
  6. ALBUTEROL [Concomitant]
     Indication: CHRONIC OBSTRUCTIVE PULMONARY DISEASE
     Dosage: PRN

REACTIONS (8)
  - Dyspnoea [Unknown]
  - Lower respiratory tract infection [Unknown]
  - Malaise [Unknown]
  - Chest discomfort [Unknown]
  - Cough [Unknown]
  - Condition aggravated [Unknown]
  - Drug dose omission [Unknown]
  - Intentional drug misuse [Unknown]
